FAERS Safety Report 15881844 (Version 1)
Quarter: 2019Q1

REPORT INFORMATION
  Report Type: Spontaneous
  Country: DO (occurrence: DO)
  Receive Date: 20190128
  Receipt Date: 20190128
  Transmission Date: 20190417
  Serious: Yes (Other)
  Sender: FDA-Public Use
  Company Number: DO-GE HEALTHCARE LIFE SCIENCES-2019CSU000423

PATIENT

DRUGS (2)
  1. OMNISCAN [Suspect]
     Active Substance: GADODIAMIDE
     Indication: NUCLEAR MAGNETIC RESONANCE IMAGING BRAIN
     Dosage: UNK, SINGLE
     Route: 042
  2. OMNISCAN [Suspect]
     Active Substance: GADODIAMIDE
     Indication: VASCULAR HEADACHE

REACTIONS (4)
  - Cough [Recovered/Resolved]
  - Respiratory distress [Recovered/Resolved]
  - Dysphagia [Recovered/Resolved]
  - Chest pain [Recovered/Resolved]
